FAERS Safety Report 18394376 (Version 1)
Quarter: 2020Q4

REPORT INFORMATION
  Report Type: Spontaneous
  Country: US (occurrence: US)
  Receive Date: 20201016
  Receipt Date: 20201016
  Transmission Date: 20210114
  Serious: No
  Sender: FDA-Public Use
  Company Number: US-INCYTE CORPORATION-2020IN009546

PATIENT

DRUGS (1)
  1. JAKAFI [Suspect]
     Active Substance: RUXOLITINIB
     Indication: MYELOFIBROSIS
     Dosage: 5 MG (1 TAB QD ALTERNATING WITH 2 TABLETS EVERY OTHER DAY)
     Route: 048
     Dates: start: 20191017

REACTIONS (1)
  - Skin abrasion [Unknown]
